FAERS Safety Report 20189119 (Version 10)
Quarter: 2022Q2

REPORT INFORMATION
  Report Type: Report from Study
  Country: CA (occurrence: CA)
  Receive Date: 20211215
  Receipt Date: 20220617
  Transmission Date: 20220720
  Serious: Yes (Other)
  Sender: FDA-Public Use
  Company Number: CA-BRISTOL-MYERS SQUIBB COMPANY-BMS-2021-112824

PATIENT
  Age: 63 Year
  Sex: Male
  Weight: 111 kg

DRUGS (21)
  1. OPDIVO [Suspect]
     Active Substance: NIVOLUMAB
     Indication: Non-small cell lung cancer metastatic
     Dosage: 360 MILLIGRAM, Q3WK
     Route: 042
     Dates: start: 20211018
  2. OPDIVO [Suspect]
     Active Substance: NIVOLUMAB
     Dosage: 360 MILLIGRAM, Q4WK
     Route: 042
  3. OPDIVO [Suspect]
     Active Substance: NIVOLUMAB
     Dosage: 160 MILLIGRAM, Q3WK
     Route: 042
     Dates: start: 20211222
  4. OPDIVO [Suspect]
     Active Substance: NIVOLUMAB
     Dosage: 200 MILLIGRAM, Q3WK
     Route: 042
     Dates: start: 20211222
  5. OPDIVO [Suspect]
     Active Substance: NIVOLUMAB
     Dosage: 360 MILLIGRAM, Q3WK
     Route: 042
     Dates: start: 20211018
  6. OPDIVO [Suspect]
     Active Substance: NIVOLUMAB
     Dosage: 160 MILLIGRAM, Q3WK
     Route: 065
  7. OPDIVO [Suspect]
     Active Substance: NIVOLUMAB
     Dosage: 200 MILLIGRAM, Q3WK
     Route: 065
  8. OPDIVO [Suspect]
     Active Substance: NIVOLUMAB
     Dosage: 360 MILLIGRAM, Q3WK
     Route: 042
  9. YERVOY [Suspect]
     Active Substance: IPILIMUMAB
     Indication: Non-small cell lung cancer metastatic
     Dosage: 1 MILLIGRAM/KILOGRAM, Q6WK
     Route: 042
     Dates: start: 20211018
  10. YERVOY [Suspect]
     Active Substance: IPILIMUMAB
     Dosage: 109 MILLIGRAM, Q4WK
     Route: 042
  11. YERVOY [Suspect]
     Active Substance: IPILIMUMAB
     Dosage: 109 MILLIGRAM, Q6WK
     Route: 042
     Dates: start: 20211018
  12. YERVOY [Suspect]
     Active Substance: IPILIMUMAB
     Dosage: 109 MILLIGRAM, Q3WK
     Route: 042
     Dates: start: 20211222
  13. YERVOY [Suspect]
     Active Substance: IPILIMUMAB
     Dosage: 1 MILLIGRAM/KILOGRAM, Q6WK
     Route: 042
  14. YERVOY [Suspect]
     Active Substance: IPILIMUMAB
     Dosage: 109 MILLIGRAM, Q6WK
     Route: 042
  15. METHOTREXATE [Concomitant]
     Active Substance: METHOTREXATE
     Indication: Product used for unknown indication
     Dosage: UNK
     Route: 065
  16. FOLIC ACID [Concomitant]
     Active Substance: FOLIC ACID
     Indication: Product used for unknown indication
     Dosage: UNK
     Route: 065
  17. VALSARTAN [Concomitant]
     Active Substance: VALSARTAN
     Indication: Product used for unknown indication
     Dosage: UNK
     Route: 065
  18. HYDROCHLOROTHIAZIDE [Concomitant]
     Active Substance: HYDROCHLOROTHIAZIDE
     Indication: Product used for unknown indication
     Dosage: UNK
     Route: 065
  19. ATORVASTATIN [Concomitant]
     Active Substance: ATORVASTATIN
     Indication: Product used for unknown indication
     Dosage: UNK
     Route: 065
  20. AMITRIPTYLINE [Concomitant]
     Active Substance: AMITRIPTYLINE
     Indication: Product used for unknown indication
     Dosage: UNK
     Route: 065
  21. ACETAMINOPHEN\OXYCODONE HYDROCHLORIDE\OXYCODONE TEREPHTHALATE [Concomitant]
     Active Substance: ACETAMINOPHEN\OXYCODONE HYDROCHLORIDE\OXYCODONE TEREPHTHALATE
     Indication: Product used for unknown indication
     Dosage: UNK
     Route: 065

REACTIONS (18)
  - Rheumatoid arthritis [Recovering/Resolving]
  - Malignant neoplasm progression [Not Recovered/Not Resolved]
  - Productive cough [Recovering/Resolving]
  - Fatigue [Recovered/Resolved]
  - Asthenia [Recovering/Resolving]
  - Dyspepsia [Recovered/Resolved]
  - Night sweats [Unknown]
  - Nausea [Recovered/Resolved]
  - Respiratory tract congestion [Not Recovered/Not Resolved]
  - Weight increased [Recovering/Resolving]
  - Hypertension [Not Recovered/Not Resolved]
  - Weight decreased [Unknown]
  - Erythema [Recovered/Resolved]
  - Arthralgia [Unknown]
  - Musculoskeletal stiffness [Unknown]
  - Pruritus [Unknown]
  - Malaise [Recovered/Resolved]
  - Intentional product use issue [Unknown]

NARRATIVE: CASE EVENT DATE: 20211022
